FAERS Safety Report 16119365 (Version 1)
Quarter: 2019Q1

REPORT INFORMATION
  Report Type: Spontaneous
  Country: US (occurrence: US)
  Receive Date: 20190326
  Receipt Date: 20190326
  Transmission Date: 20190418
  Serious: Yes (Hospitalization, Other)
  Sender: FDA-Public Use
  Company Number: US-PFIZER INC-2019123326

PATIENT
  Age: 66 Year
  Sex: Female
  Weight: 95.25 kg

DRUGS (3)
  1. GABAPENTIN. [Suspect]
     Active Substance: GABAPENTIN
     Indication: NEUROPATHY PERIPHERAL
     Dosage: 300 MG, UNK (THREE TO 4 TIMES A DAY)
  2. GABAPENTIN. [Suspect]
     Active Substance: GABAPENTIN
     Dosage: 2700 MG, DAILY
  3. HUMALOG [Concomitant]
     Active Substance: INSULIN LISPRO
     Indication: DIABETES MELLITUS
     Dosage: 85 IU, DAILY (45 UNITS IN THE MORNING, AND 40 UNITS IN THE EVENING)

REACTIONS (6)
  - Gait disturbance [Recovered/Resolved]
  - Escherichia bacteraemia [Unknown]
  - Pain in extremity [Recovered/Resolved]
  - Drug ineffective for unapproved indication [Unknown]
  - Urosepsis [Recovered/Resolved]
  - Cystitis [Recovered/Resolved]

NARRATIVE: CASE EVENT DATE: 20190304
